FAERS Safety Report 23213249 (Version 1)
Quarter: 2023Q4

REPORT INFORMATION
  Report Type: Spontaneous
  Country: FR (occurrence: FR)
  Receive Date: 20231121
  Receipt Date: 20231121
  Transmission Date: 20240110
  Serious: Yes (Life-Threatening)
  Sender: FDA-Public Use
  Company Number: FR-SANDOZ-SDZ2023FR008565

PATIENT
  Age: 64 Year
  Sex: Female

DRUGS (17)
  1. PREGABALIN [Interacting]
     Active Substance: PREGABALIN
     Indication: Pudendal canal syndrome
     Dosage: 600 MG IN 1 DAY
     Route: 048
     Dates: start: 20230626
  2. ACETAMINOPHEN [Interacting]
     Active Substance: ACETAMINOPHEN
     Indication: Product used for unknown indication
     Dosage: 4 DOSAGE FORM IN 1 AS NECESSARY
     Route: 065
  3. ZOPICLONE [Interacting]
     Active Substance: ZOPICLONE
     Indication: Sleep disorder
     Dosage: 3.75 MILLIGRAM IN 1 DAY
     Route: 048
     Dates: start: 20230626
  4. CYAMEMAZINE [Suspect]
     Active Substance: CYAMEMAZINE
     Indication: Mixed anxiety and depressive disorder
     Dosage: 1.5 DOSAGE FORM IN 1 DAY
     Route: 048
     Dates: start: 20230626
  5. FOSFOMYCIN [Concomitant]
     Active Substance: FOSFOMYCIN
     Indication: Cystitis escherichia
     Dosage: UNK
     Route: 065
  6. SERETIDE [Concomitant]
     Active Substance: FLUTICASONE PROPIONATE\SALMETEROL XINAFOATE
     Indication: Product used for unknown indication
     Dosage: 500/50 ?G
  7. ATORVASTATIN [Concomitant]
     Active Substance: ATORVASTATIN
     Indication: Product used for unknown indication
     Dosage: 40 MILLIGRAM IN 1 DAY, FREQUENCY: 0.0.1
     Route: 065
  8. KARDEGIC [Concomitant]
     Active Substance: ASPIRIN DL-LYSINE
     Indication: Product used for unknown indication
     Dosage: 75 MILLIGRAM IN 1 DAY, FREQUENCY: 0.1.0
     Route: 065
  9. SPIRIVA [Concomitant]
     Active Substance: TIOTROPIUM BROMIDE MONOHYDRATE
     Indication: Product used for unknown indication
     Dosage: 18 MICROGRAM IN 1 DAY,  FREQUENCY: 1.0.0
     Route: 065
  10. LEVOTHYROXINE [Concomitant]
     Active Substance: LEVOTHYROXINE
     Indication: Product used for unknown indication
     Dosage: 75 MICROGRAM IN 1 DAY, FREQUENCY: 1.0.0
     Route: 065
  11. ESOMEPRAZOLE [Concomitant]
     Active Substance: ESOMEPRAZOLE
     Indication: Product used for unknown indication
     Dosage: 20 MILLIGRAM IN 1 DAY, FREQUENCY: 0.0.1
     Route: 065
  12. TROMETHAMINE [Concomitant]
     Active Substance: TROMETHAMINE
     Indication: Cystitis escherichia
     Dosage: UNK
     Route: 065
  13. ALBUTEROL [Concomitant]
     Active Substance: ALBUTEROL
     Indication: Product used for unknown indication
     Dosage: DOSE 2 PUFFS MORNING, NOON AND EVENING, AND AT NIGHT IF NECESSARY
     Route: 065
  14. ATARAX [Suspect]
     Active Substance: HYDROXYZINE HYDROCHLORIDE
     Indication: Pudendal canal syndrome
     Dosage: 3 DOSAGE FORM IN 1 AS NECESSARY
     Route: 048
     Dates: start: 202306, end: 20230626
  15. BROMAZEPAM [Suspect]
     Active Substance: BROMAZEPAM
     Indication: Mixed anxiety and depressive disorder
     Dosage: 4.5 MG IN 1 DAY
     Route: 048
     Dates: start: 20230626
  16. MIRTAZAPINE [Suspect]
     Active Substance: MIRTAZAPINE
     Indication: Pudendal canal syndrome
     Dosage: 45 MG IN 1 DAY
     Route: 048
     Dates: start: 20230626
  17. POLYETHYLENE GLYCOL 4000 [Concomitant]
     Active Substance: POLYETHYLENE GLYCOL 4000
     Indication: Product used for unknown indication
     Dosage: FREQUENCY:3.0.0
     Route: 065

REACTIONS (5)
  - Drug interaction [Recovered/Resolved]
  - Hypercapnia [Recovered/Resolved]
  - Respiratory acidosis [Recovered/Resolved]
  - Urinary tract infection [Unknown]
  - Chronic obstructive pulmonary disease [Recovered/Resolved]

NARRATIVE: CASE EVENT DATE: 20230621
